FAERS Safety Report 8794331 (Version 1)
Quarter: 2012Q4

REPORT INFORMATION
  Report Type: 
  Country: US (occurrence: US)
  Receive Date: 20120917
  Receipt Date: 20120917
  Transmission Date: 20130627
  Serious: No
  Sender: FDA-Public Use
  Company Number: US-009507513-1206USA05053

PATIENT

DRUGS (2)
  1. JANUMET [Suspect]
     Indication: GLYCOSYLATED HAEMOGLOBIN INCREASED
     Dosage: 1000mg/50
     Route: 048
  2. LAMISIL (TERBINAFINE) [Concomitant]
     Dosage: 250 mg, qd
     Dates: start: 20120207

REACTIONS (3)
  - Pruritus [Not Recovered/Not Resolved]
  - Headache [Recovered/Resolved]
  - Inappropriate schedule of drug administration [Unknown]
